FAERS Safety Report 22181544 (Version 1)
Quarter: 2023Q2

REPORT INFORMATION
  Report Type: Spontaneous
  Country: US (occurrence: None)
  Receive Date: 20230406
  Receipt Date: 20230406
  Transmission Date: 20230722
  Serious: Yes (Hospitalization, Other)
  Sender: FDA-Public Use
  Company Number: US-USWM, LLC-UWM202303-000009

PATIENT
  Age: 42 Year
  Sex: Female

DRUGS (8)
  1. LUCEMYRA [Suspect]
     Active Substance: LOFEXIDINE
     Indication: Drug withdrawal syndrome
     Dates: start: 20230322
  2. LUCEMYRA [Suspect]
     Active Substance: LOFEXIDINE
  3. LUCEMYRA [Suspect]
     Active Substance: LOFEXIDINE
  4. SUBOXONE [Concomitant]
     Active Substance: BUPRENORPHINE HYDROCHLORIDE\NALOXONE HYDROCHLORIDE
     Dosage: EACH DF OF 8MG-2MG
  5. SUBOXONE [Concomitant]
     Active Substance: BUPRENORPHINE HYDROCHLORIDE\NALOXONE HYDROCHLORIDE
     Dosage: EACH DF OF 2MG/0.5MG 4 HOURS LATER
  6. SUBOXONE [Concomitant]
     Active Substance: BUPRENORPHINE HYDROCHLORIDE\NALOXONE HYDROCHLORIDE
     Dosage: EACH DF OF 4MG/1MG 3 HOURS LATER
  7. SUBOXONE [Concomitant]
     Active Substance: BUPRENORPHINE HYDROCHLORIDE\NALOXONE HYDROCHLORIDE
     Dosage: EACH DF OF 8MG/2MG 2 HOURS LATER
  8. SUBOXONE [Concomitant]
     Active Substance: BUPRENORPHINE HYDROCHLORIDE\NALOXONE HYDROCHLORIDE
     Dosage: EACH DF OF 4MG/1MG 1 HOURS LATER

REACTIONS (6)
  - Heart rate irregular [Unknown]
  - Pericardial effusion [Unknown]
  - Pleural effusion [Unknown]
  - Myocardial necrosis marker increased [Unknown]
  - Dyspnoea [Unknown]
  - Prescribed overdose [Unknown]

NARRATIVE: CASE EVENT DATE: 20230323
